FAERS Safety Report 12716233 (Version 3)
Quarter: 2016Q4

REPORT INFORMATION
  Report Type: Report from Study
  Country: BR (occurrence: BR)
  Receive Date: 20160906
  Receipt Date: 20161028
  Transmission Date: 20170207
  Serious: Yes (Death, Hospitalization, Other)
  Sender: FDA-Public Use
  Company Number: PHHY2016BR105862

PATIENT
  Sex: Female
  Weight: 45 kg

DRUGS (1)
  1. AFINITOR [Suspect]
     Active Substance: EVEROLIMUS
     Indication: BREAST CANCER
     Dosage: 1 DF, QD
     Route: 048
     Dates: start: 201606

REACTIONS (16)
  - Terminal state [Unknown]
  - Depression [Unknown]
  - Wound [Unknown]
  - Blood glucose increased [Unknown]
  - Weight decreased [Unknown]
  - Dyspnoea [Fatal]
  - Second primary malignancy [Unknown]
  - Lung disorder [Fatal]
  - Bone cancer [Unknown]
  - Malignant neoplasm progression [Unknown]
  - Acne pustular [Unknown]
  - Asthenia [Unknown]
  - Cough [Not Recovered/Not Resolved]
  - Purulent discharge [Unknown]
  - Stomatitis [Recovered/Resolved]
  - Blood cholesterol increased [Unknown]
